FAERS Safety Report 23301860 (Version 1)
Quarter: 2023Q4

REPORT INFORMATION
  Report Type: Spontaneous
  Country: IT (occurrence: IT)
  Receive Date: 20231215
  Receipt Date: 20231215
  Transmission Date: 20240110
  Serious: Yes (Other)
  Sender: FDA-Public Use
  Company Number: IT-PFIZER INC-PV202300201216

PATIENT
  Age: 17 Month
  Sex: Male

DRUGS (2)
  1. METHYLPREDNISOLONE [Suspect]
     Active Substance: METHYLPREDNISOLONE
     Indication: Mevalonate kinase deficiency
     Dosage: 2 MG/KG
  2. METHYLPREDNISOLONE [Suspect]
     Active Substance: METHYLPREDNISOLONE
     Dosage: UNK (AN INCREASED FREQUENCY AND WITH HIGHER DOSAGE)

REACTIONS (2)
  - Steroid dependence [Unknown]
  - Off label use [Unknown]
